FAERS Safety Report 18698862 (Version 1)
Quarter: 2021Q1

REPORT INFORMATION
  Report Type: Spontaneous
  Country: US (occurrence: US)
  Receive Date: 20210105
  Receipt Date: 20210105
  Transmission Date: 20210419
  Serious: Yes (Other)
  Sender: FDA-Public Use
  Company Number: US-COLGATE PALMOLIVE COMPANY-20201202474

PATIENT
  Sex: Female

DRUGS (1)
  1. SOFTSOAP ANTIBACTERIAL WITH MOISTURIZERS CRISP CLEAN [Suspect]
     Active Substance: BENZALKONIUM CHLORIDE
     Dosage: UNK
     Dates: start: 20201224

REACTIONS (6)
  - Erythema [Unknown]
  - Blister [Unknown]
  - Skin weeping [Unknown]
  - Wrong technique in product usage process [Unknown]
  - Pain [Unknown]
  - Chemical burn of skin [Unknown]

NARRATIVE: CASE EVENT DATE: 20201224
